FAERS Safety Report 4280206-5 (Version None)
Quarter: 2004Q1

REPORT INFORMATION
  Report Type: 
  Country: None (occurrence: None)
  Receive Date: 20040128
  Receipt Date: 20040114
  Transmission Date: 20041129
  Serious: Yes (Other)
  Sender: FDA-Public Use
  Company Number: FR-GLAXOSMITHKLINE-B0320822A

PATIENT
  Sex: Female

DRUGS (2)
  1. DEROXAT [Suspect]
  2. MOPRAL [Concomitant]

REACTIONS (3)
  - CONFUSIONAL STATE [None]
  - ENCEPHALOPATHY [None]
  - PSYCHOMOTOR RETARDATION [None]
